FAERS Safety Report 8097246-0 (Version None)
Quarter: 2012Q1

REPORT INFORMATION
  Report Type: 
  Country: None (occurrence: None)
  Receive Date: 20120128
  Receipt Date: 20110623
  Transmission Date: 20120608
  Serious: No
  Sender: FDA-Public Use
  Company Number: US-ABBOTT-11P-163-0835076-00

PATIENT
  Age: 40 Year
  Sex: Female

DRUGS (15)
  1. PEPCID [Concomitant]
     Indication: GASTROOESOPHAGEAL REFLUX DISEASE
     Dosage: AT BEDTIME
  2. TRILEPTAL [Concomitant]
     Indication: BIPOLAR DISORDER
  3. JANUMET [Concomitant]
     Indication: DIABETES MELLITUS
     Route: 048
  4. ALBUTEROL [Concomitant]
     Indication: ASTHMA
  5. HYDROXYZINE [Concomitant]
     Indication: PSORIASIS
  6. HYDROXYZINE [Concomitant]
     Indication: PRURITUS
     Route: 048
  7. DIOVAN [Concomitant]
     Indication: BLOOD PRESSURE INCREASED
     Route: 048
  8. HUMIRA [Suspect]
     Indication: PSORIASIS
  9. ZOLOFT [Concomitant]
     Indication: PRODUCT USED FOR UNKNOWN INDICATION
  10. SYNTHROID [Concomitant]
     Indication: PRODUCT USED FOR UNKNOWN INDICATION
     Route: 048
  11. IBUPROFEN [Concomitant]
     Indication: PRODUCT USED FOR UNKNOWN INDICATION
     Route: 048
  12. BENADRYL [Concomitant]
     Indication: PRURITUS
  13. PERCOCET [Concomitant]
     Indication: PRODUCT USED FOR UNKNOWN INDICATION
     Route: 048
  14. SIMVASTATIN [Concomitant]
     Indication: PRODUCT USED FOR UNKNOWN INDICATION
  15. HORMONE REPLACEMENT PATCH [Concomitant]
     Indication: PRODUCT USED FOR UNKNOWN INDICATION

REACTIONS (4)
  - LYMPHOEDEMA [None]
  - SKIN DISCOLOURATION [None]
  - GASTROOESOPHAGEAL REFLUX DISEASE [None]
  - SKIN EXFOLIATION [None]
